FAERS Safety Report 7218904-3 (Version None)
Quarter: 2011Q1

REPORT INFORMATION
  Report Type: 
  Country: None (occurrence: None)
  Receive Date: 20110110
  Receipt Date: 20110106
  Transmission Date: 20110831
  Serious: Yes (Life-Threatening)
  Sender: FDA-Public Use
  Company Number: JP-BAYER-2011-001863

PATIENT
  Age: 72 Year
  Sex: Female

DRUGS (1)
  1. GLUCOBAY [Suspect]
     Indication: DIABETES MELLITUS
     Dosage: DAILY DOSE 150 MG
     Route: 048
     Dates: start: 20090311, end: 20101006

REACTIONS (1)
  - GASTROINTESTINAL PERFORATION [None]
